FAERS Safety Report 11313599 (Version 3)
Quarter: 2016Q4

REPORT INFORMATION
  Report Type: Spontaneous
  Country: US (occurrence: US)
  Receive Date: 20150727
  Receipt Date: 20161025
  Transmission Date: 20170206
  Serious: Yes (Other)
  Sender: FDA-Public Use
  Company Number: US-PFIZER INC-2015247167

PATIENT
  Age: 76 Year
  Sex: Female

DRUGS (4)
  1. ALPHAGAN P [Concomitant]
     Active Substance: BRIMONIDINE TARTRATE
     Indication: NORMAL TENSION GLAUCOMA
     Dosage: 3 DROPS IN BOTH EYES THREE TIMES]
     Route: 047
  2. XALATAN [Suspect]
     Active Substance: LATANOPROST
     Indication: NORMAL TENSION GLAUCOMA
     Dosage: 2 GTT, 1X/DAY: ONE DROP IN EACH EYE AT BEDTIME]
     Route: 047
  3. SYSTANE ULTRA [Concomitant]
     Active Substance: POLYETHYLENE GLYCOL 400\PROPYLENE GLYCOL
     Indication: DRY EYE
     Dosage: UNK [OPENS VIAL AND PUTS DROP IN HER EYES]
  4. XALATAN [Suspect]
     Active Substance: LATANOPROST
     Indication: GLAUCOMA

REACTIONS (6)
  - Ear infection [Recovered/Resolved]
  - Malaise [Unknown]
  - Foot fracture [Unknown]
  - Off label use [Unknown]
  - Intraocular pressure increased [Unknown]
  - Eye disorder [Not Recovered/Not Resolved]

NARRATIVE: CASE EVENT DATE: 2015
